FAERS Safety Report 21328486 (Version 3)
Quarter: 2022Q4

REPORT INFORMATION
  Report Type: Report from Study
  Country: US (occurrence: US)
  Receive Date: 20220913
  Receipt Date: 20221117
  Transmission Date: 20230113
  Serious: Yes (Other)
  Sender: FDA-Public Use
  Company Number: US-BIOVITRUM-2022US10519

PATIENT
  Sex: Female

DRUGS (1)
  1. KINERET [Suspect]
     Active Substance: ANAKINRA
     Indication: Product used for unknown indication

REACTIONS (5)
  - Pulmonary congestion [Unknown]
  - Rhinorrhoea [Unknown]
  - Paranasal sinus hypersecretion [Unknown]
  - Cough [Unknown]
  - Hypersensitivity [Unknown]
